FAERS Safety Report 7197496-1 (Version None)
Quarter: 2010Q4

REPORT INFORMATION
  Report Type: 
  Country: None (occurrence: None)
  Receive Date: 20101208
  Receipt Date: 20101123
  Transmission Date: 20110411
  Serious: Yes (Other)
  Sender: FDA-Public Use
  Company Number: 2010SP061580

PATIENT
  Age: 13 Year
  Sex: Male

DRUGS (2)
  1. SAPHRIS [Suspect]
     Indication: AUTISM
     Dosage: 5 MG;QD;SL 5 MG;BID;SL
     Route: 060
     Dates: start: 20100413, end: 20100518
  2. SAPHRIS [Suspect]
     Indication: AUTISM
     Dosage: 5 MG;QD;SL 5 MG;BID;SL
     Route: 060
     Dates: start: 20100519

REACTIONS (1)
  - BLOOD TRIGLYCERIDES INCREASED [None]
